FAERS Safety Report 6148882-X (Version None)
Quarter: 2009Q2

REPORT INFORMATION
  Report Type: 
  Country: None (occurrence: None)
  Receive Date: 20090407
  Receipt Date: 20090324
  Transmission Date: 20091009
  Serious: Yes (Other)
  Sender: FDA-Public Use
  Company Number: B0568010A

PATIENT
  Age: 26 Year
  Sex: Male

DRUGS (4)
  1. ONDANSETRON HYDROCHLORIDE [Suspect]
     Indication: PROPHYLAXIS OF NAUSEA AND VOMITING
     Dosage: 4 MG/ INTRAVENOUS
     Route: 042
  2. PROPOFOL [Suspect]
     Indication: GENERAL ANAESTHESIA
  3. BUPIVACAINE [Concomitant]
  4. DESFLURANE [Concomitant]

REACTIONS (8)
  - DYSKINESIA [None]
  - DYSTONIA [None]
  - EXTRAPYRAMIDAL DISORDER [None]
  - LARYNGOSPASM [None]
  - MYOCLONUS [None]
  - OPISTHOTONUS [None]
  - OROPHARYNGEAL SPASM [None]
  - TREMOR [None]
